FAERS Safety Report 6930438-X (Version None)
Quarter: 2010Q3

REPORT INFORMATION
  Report Type: 
  Country: None (occurrence: None)
  Receive Date: 20100818
  Receipt Date: 20100806
  Transmission Date: 20110219
  Serious: Yes (Hospitalization)
  Sender: FDA-Public Use
  Company Number: JP-SANOFI-AVENTIS-2010SA046484

PATIENT
  Age: 66 Year
  Sex: Male
  Weight: 66 kg

DRUGS (6)
  1. INDAPAMIDE [Suspect]
     Indication: HYPERTENSION
     Route: 065
     Dates: start: 20091126, end: 20100317
  2. ADALAT [Concomitant]
     Indication: PRODUCT USED FOR UNKNOWN INDICATION
     Route: 065
     Dates: start: 20091030, end: 20100317
  3. MICARDIS [Concomitant]
     Indication: PRODUCT USED FOR UNKNOWN INDICATION
     Route: 065
     Dates: start: 20060926
  4. ALLOPURINOL [Concomitant]
     Indication: PRODUCT USED FOR UNKNOWN INDICATION
  5. ATORVASTATIN [Concomitant]
     Indication: PRODUCT USED FOR UNKNOWN INDICATION
     Dates: start: 19940428
  6. ROCORNAL [Concomitant]
     Indication: PRODUCT USED FOR UNKNOWN INDICATION
     Dates: start: 20060926

REACTIONS (4)
  - FACE OEDEMA [None]
  - HYPONATRAEMIA [None]
  - MYALGIA [None]
  - OEDEMA PERIPHERAL [None]
